FAERS Safety Report 18021169 (Version 1)
Quarter: 2020Q3

REPORT INFORMATION
  Report Type: Spontaneous
  Country: CH (occurrence: CH)
  Receive Date: 20200714
  Receipt Date: 20200714
  Transmission Date: 20201103
  Serious: Yes (Hospitalization)
  Sender: FDA-Public Use
  Company Number: CH-MACLEODS PHARMACEUTICALS US LTD-MAC2020027272

PATIENT

DRUGS (7)
  1. RITONAVIR. [Interacting]
     Active Substance: RITONAVIR
     Indication: HIV INFECTION
     Dosage: 100 MILLIGRAM, QID, BOOSTER DOSE
     Route: 065
  2. DIDANOSINE. [Concomitant]
     Active Substance: DIDANOSINE
     Indication: HIV INFECTION
     Dosage: 400 MILLIGRAM, QID
     Route: 065
  3. CLOBETASOL [Interacting]
     Active Substance: CLOBETASOL
     Indication: RASH
     Dosage: UNK
     Route: 061
  4. ETRAVIRINE [Concomitant]
     Active Substance: ETRAVIRINE
     Indication: HIV INFECTION
     Dosage: 400 MILLIGRAM, QID
     Route: 065
  5. FLUTICASONE. [Interacting]
     Active Substance: FLUTICASONE
     Indication: DYSPNOEA
     Dosage: UNK
  6. ATAZANAVIR. [Concomitant]
     Active Substance: ATAZANAVIR
     Indication: HIV INFECTION
     Dosage: 300 MILLIGRAM, QID
     Route: 065
  7. TRIAMCINOLONE ACETONIDE. [Suspect]
     Active Substance: TRIAMCINOLONE ACETONIDE
     Indication: EPICONDYLITIS
     Dosage: 80 MILLIGRAM TOTAL, 40 MILLIGRAM INJECTION IN EACH ELBOW
     Route: 051

REACTIONS (5)
  - Deep vein thrombosis [Recovered/Resolved]
  - Drug interaction [Unknown]
  - Pulmonary embolism [Recovered/Resolved]
  - Cushing^s syndrome [Recovered/Resolved]
  - Hypothalamic pituitary adrenal axis suppression [Recovered/Resolved]
